FAERS Safety Report 7617916-5 (Version None)
Quarter: 2011Q3

REPORT INFORMATION
  Report Type: 
  Country: None (occurrence: None)
  Receive Date: 20110718
  Receipt Date: 20110630
  Transmission Date: 20111222
  Serious: Yes (Other)
  Sender: FDA-Public Use
  Company Number: PHHY2011US58753

PATIENT
  Age: 75 Year
  Sex: Female

DRUGS (4)
  1. METRONIDAZOLE [Concomitant]
     Dosage: 250 MG, TID FOR 10 DAYS
  2. AMOXICILLIN [Concomitant]
     Dosage: 500 MG, UNK
  3. RECLAST [Suspect]
     Route: 042
  4. FOSAMAX [Suspect]
     Indication: OSTEOPOROSIS
     Dosage: 70 MG PER WEEK

REACTIONS (7)
  - FISTULA [None]
  - PAIN IN JAW [None]
  - SWELLING [None]
  - CELLULITIS [None]
  - BONE DISORDER [None]
  - OSTEONECROSIS OF JAW [None]
  - IMPAIRED HEALING [None]
